FAERS Safety Report 7995508-6 (Version None)
Quarter: 2011Q4

REPORT INFORMATION
  Report Type: 
  Country: None (occurrence: None)
  Receive Date: 20111220
  Receipt Date: 20111012
  Transmission Date: 20120403
  Serious: No
  Sender: FDA-Public Use
  Company Number: US-BAYER-2011-087559

PATIENT
  Age: 18 Year
  Sex: Female

DRUGS (1)
  1. BEYAZ [Suspect]
     Indication: ORAL CONTRACEPTION
     Dosage: UNK
     Dates: start: 20110801

REACTIONS (1)
  - LOSS OF LIBIDO [None]
